FAERS Safety Report 24109044 (Version 1)
Quarter: 2024Q3

REPORT INFORMATION
  Report Type: Spontaneous
  Country: CN (occurrence: CN)
  Receive Date: 20240718
  Receipt Date: 20240718
  Transmission Date: 20241017
  Serious: Yes (Life-Threatening, Hospitalization, Other)
  Sender: ACCORD
  Company Number: CN-Accord-435328

PATIENT
  Age: 68 Year
  Sex: Male

DRUGS (9)
  1. CARBOPLATIN [Suspect]
     Active Substance: CARBOPLATIN
     Indication: Lung squamous cell carcinoma stage III
     Dosage: FIRST CYCLE
     Dates: start: 20210827
  2. PACLITAXEL [Suspect]
     Active Substance: PACLITAXEL
     Indication: Lung squamous cell carcinoma stage III
     Dosage: FIRST CYCLE
     Dates: start: 20210827
  3. SINTILIMAB [Suspect]
     Active Substance: SINTILIMAB
     Indication: Lung squamous cell carcinoma stage III
     Dates: start: 20210827
  4. BEVACIZUMAB [Suspect]
     Active Substance: BEVACIZUMAB
     Indication: Lung squamous cell carcinoma stage III
     Dates: start: 20211011, end: 202110
  5. EDOXABAN [Concomitant]
     Active Substance: EDOXABAN
     Indication: Anticoagulant therapy
     Dosage: STRENGTH : 30 MG
     Route: 048
     Dates: start: 20210925
  6. CARBOPLATIN [Suspect]
     Active Substance: CARBOPLATIN
     Indication: Lung squamous cell carcinoma stage III
     Dates: start: 20211011, end: 202110
  7. PACLITAXEL [Suspect]
     Active Substance: PACLITAXEL
     Indication: Lung squamous cell carcinoma stage III
     Dates: start: 20211011, end: 202110
  8. SINTILIMAB [Suspect]
     Active Substance: SINTILIMAB
     Indication: Lung squamous cell carcinoma stage III
     Dates: start: 20211011, end: 202110
  9. SINTILIMAB [Suspect]
     Active Substance: SINTILIMAB
     Indication: Lung squamous cell carcinoma stage III
     Dosage: SECOND DOSE OF SINTILIMAB
     Dates: start: 20210925

REACTIONS (7)
  - Neutropenia [Recovered/Resolved]
  - Sepsis [Unknown]
  - Corynebacterium infection [Unknown]
  - Staphylococcal infection [Unknown]
  - Cytomegalovirus test positive [Unknown]
  - Myelosuppression [Unknown]
  - Agranulocytosis [Unknown]

NARRATIVE: CASE EVENT DATE: 20210901
